FAERS Safety Report 12332311 (Version 1)
Quarter: 2016Q2

REPORT INFORMATION
  Report Type: Spontaneous
  Country: FR (occurrence: FR)
  Receive Date: 20160504
  Receipt Date: 20160504
  Transmission Date: 20160815
  Serious: Yes (Hospitalization)
  Sender: FDA-Public Use
  Company Number: FR-TEVA-656949ISR

PATIENT
  Age: 70 Year
  Sex: Female

DRUGS (5)
  1. PREDNISOLONE. [Concomitant]
     Active Substance: PREDNISOLONE
     Indication: CHOLANGIOCARCINOMA
     Dosage: 60 MILLIGRAM DAILY;
     Dates: start: 20160224, end: 20160226
  2. GEMCITABINE ARROW [Concomitant]
     Indication: CHOLANGIOCARCINOMA
     Dosage: 1389 MILLIGRAM DAILY;
     Route: 042
     Dates: start: 20160222, end: 20160222
  3. METHYLPREDNISOLONE. [Concomitant]
     Active Substance: METHYLPREDNISOLONE
     Indication: CHOLANGIOCARCINOMA
     Dosage: 40 MILLIGRAM DAILY;
     Route: 042
     Dates: start: 20160222, end: 20160223
  4. OXALIPLATINE TEVA [Suspect]
     Active Substance: OXALIPLATIN
     Indication: CHOLANGIOCARCINOMA
     Dosage: 87 MILLIGRAM DAILY;
     Route: 042
     Dates: start: 20160223, end: 20160223
  5. SETOFILM 8 MG [Concomitant]
     Indication: CHOLANGIOCARCINOMA
     Dosage: 2 DOSAGE FORMS DAILY;
     Route: 048
     Dates: start: 20160223, end: 20160223

REACTIONS (4)
  - Cold sweat [Recovered/Resolved]
  - Pyrexia [Recovered/Resolved]
  - Chills [Recovered/Resolved]
  - Erythema [Recovered/Resolved]

NARRATIVE: CASE EVENT DATE: 20160223
